FAERS Safety Report 5146893-4 (Version None)
Quarter: 2006Q4

REPORT INFORMATION
  Report Type: 
  Country: None (occurrence: None)
  Receive Date: 20061109
  Receipt Date: 20061106
  Transmission Date: 20070319
  Serious: Yes (Life-Threatening, Hospitalization)
  Sender: FDA-Public Use
  Company Number: M-09-018

PATIENT
  Age: 44 Year
  Sex: Female

DRUGS (8)
  1. SEROXAT [Suspect]
     Indication: DEPRESSION
     Dosage: 20MG PER DAY
     Route: 048
     Dates: start: 20030101, end: 20060401
  2. SEROXAT [Suspect]
     Indication: DISEASE RECURRENCE
     Dosage: 20MG PER DAY
     Route: 048
     Dates: start: 20030101, end: 20060401
  3. APONAL [Suspect]
     Indication: DEPRESSION
     Dosage: 200MG PER DAY
     Route: 048
     Dates: start: 19980101, end: 20060401
  4. APONAL [Suspect]
     Indication: DISEASE RECURRENCE
     Dosage: 200MG PER DAY
     Route: 048
     Dates: start: 19980101, end: 20060401
  5. ATOSIL [Suspect]
     Indication: DEPRESSION
     Dosage: 20MG PER DAY
     Route: 048
     Dates: start: 20030101, end: 20060401
  6. ATOSIL [Suspect]
     Indication: DISEASE RECURRENCE
     Dosage: 20MG PER DAY
     Route: 048
     Dates: start: 20030101, end: 20060401
  7. TRANXILIUM [Concomitant]
     Dosage: 5MG PER DAY
     Route: 048
     Dates: start: 19980101, end: 20060401
  8. ZOPICLON [Concomitant]
     Route: 048
     Dates: start: 19980101, end: 20060401

REACTIONS (17)
  - AUTOIMMUNE THYROIDITIS [None]
  - COMA [None]
  - DISORIENTATION [None]
  - EXTRAPYRAMIDAL DISORDER [None]
  - GASTROINTESTINAL DISORDER [None]
  - GENERAL PHYSICAL HEALTH DETERIORATION [None]
  - HYPERTHERMIA [None]
  - HYPERTONIA [None]
  - HYPERVENTILATION [None]
  - MENINGISM [None]
  - NEUROLEPTIC MALIGNANT SYNDROME [None]
  - OEDEMA PERIPHERAL [None]
  - PALLOR [None]
  - RESPIRATORY FAILURE [None]
  - RHABDOMYOLYSIS [None]
  - TREMOR [None]
  - VASOCONSTRICTION [None]
